FAERS Safety Report 13905036 (Version 1)
Quarter: 2017Q3

REPORT INFORMATION
  Report Type: Report from Study
  Country: US (occurrence: US)
  Receive Date: 20170825
  Receipt Date: 20170825
  Transmission Date: 20171127
  Serious: Yes (Hospitalization)
  Sender: FDA-Public Use
  Company Number: US-ASTRAZENECA-2017SE42635

PATIENT
  Age: 22070 Day
  Sex: Female
  Weight: 57.5 kg

DRUGS (16)
  1. LEVAQUIN [Concomitant]
     Active Substance: LEVOFLOXACIN
     Indication: PYREXIA
     Dosage: 500.0MG UNKNOWN
     Route: 048
     Dates: start: 20170324
  2. KOMBUCHA [Concomitant]
     Active Substance: DIETARY SUPPLEMENT
     Indication: SUPPLEMENTATION THERAPY
     Dates: start: 20170118
  3. VITAMIN B6 [Concomitant]
     Active Substance: PYRIDOXINE HYDROCHLORIDE
     Indication: SUPPLEMENTATION THERAPY
     Dates: start: 2015
  4. IMODIUM [Concomitant]
     Active Substance: LOPERAMIDE HYDROCHLORIDE
     Indication: DIARRHOEA
     Dosage: 2.0MG UNKNOWN
     Route: 048
     Dates: start: 20170124
  5. AZD1775 [Suspect]
     Active Substance: INVESTIGATIONAL PRODUCT
     Indication: ADENOCARCINOMA PANCREAS
     Dosage: 175.0MG UNKNOWN
     Route: 048
     Dates: start: 20170123, end: 20170322
  6. ATIVAN [Concomitant]
     Active Substance: LORAZEPAM
     Indication: NAUSEA
     Dosage: 1.0MG AS REQUIRED
     Route: 048
     Dates: start: 2016
  7. BENADRYL [Concomitant]
     Active Substance: DIPHENHYDRAMINE HYDROCHLORIDE
     Indication: ANXIETY
     Dosage: 25.0MG AS REQUIRED
     Route: 048
     Dates: start: 201611
  8. COMPAZINE [Concomitant]
     Active Substance: PROCHLORPERAZINE MALEATE
     Indication: NAUSEA
     Dosage: 10.0MG AS REQUIRED
     Dates: start: 2016
  9. PROMETHAZINE [Concomitant]
     Active Substance: PROMETHAZINE\PROMETHAZINE HYDROCHLORIDE
     Indication: NAUSEA
     Dosage: 25.0MG AS REQUIRED
     Dates: start: 2016
  10. VITAMIN D3 [Concomitant]
     Active Substance: CHOLECALCIFEROL
     Indication: SUPPLEMENTATION THERAPY
     Dates: start: 2015
  11. OLAPARIB. [Suspect]
     Active Substance: OLAPARIB
     Indication: ADENOCARCINOMA PANCREAS
     Dosage: 200.0MG AS REQUIRED
     Route: 048
     Dates: start: 20170116, end: 20170324
  12. ACETAMINOPHEN. [Concomitant]
     Active Substance: ACETAMINOPHEN
     Indication: PAIN
     Dosage: 500.0MG AS REQUIRED
     Route: 048
     Dates: start: 201611
  13. ALEVE [Concomitant]
     Active Substance: NAPROXEN SODIUM
     Indication: PAIN
     Dosage: 220.0MG AS REQUIRED
     Route: 048
     Dates: start: 201612
  14. DELSYM [Concomitant]
     Active Substance: DEXTROMETHORPHAN
     Indication: COUGH
     Dates: start: 20170329
  15. ATIVAN [Concomitant]
     Active Substance: LORAZEPAM
     Indication: ANXIETY
     Dosage: 1.0MG AS REQUIRED
     Route: 048
     Dates: start: 2016
  16. COLACE [Concomitant]
     Active Substance: DOCUSATE SODIUM
     Indication: CONSTIPATION
     Dosage: 100.0MG AS REQUIRED
     Route: 048
     Dates: start: 20170220

REACTIONS (1)
  - Pneumonitis [Recovered/Resolved]

NARRATIVE: CASE EVENT DATE: 20170407
